FAERS Safety Report 9257744 (Version 2)
Quarter: 2014Q1

REPORT INFORMATION
  Report Type: Spontaneous
  Country: US (occurrence: None)
  Receive Date: 20121212
  Receipt Date: 20130314
  Transmission Date: 20141002
  Serious: No
  Sender: FDA-Public Use
  Company Number: 1208USA012268

PATIENT
  Age: 46 Year
  Sex: Female

DRUGS (3)
  1. PEG-INTRON [Suspect]
     Indication: HEPATITIS C
     Dosage: 0.5CC, REDIPEN
     Dates: start: 20120706
  2. RIBAVIRIN [Suspect]
     Indication: HEPATITIS C
     Dates: start: 20120706
  3. VICTRELIS [Suspect]
     Indication: HEPATITIS C
     Dates: start: 20120803

REACTIONS (26)
  - Hypoaesthesia [None]
  - Feeling cold [None]
  - Musculoskeletal stiffness [None]
  - Hypertension [None]
  - Injection site reaction [None]
  - Fatigue [None]
  - Weight decreased [None]
  - Dyspnoea [None]
  - Neutrophil count decreased [None]
  - Fatigue [None]
  - Dizziness [None]
  - Dyspnoea [None]
  - Diarrhoea [None]
  - Nausea [None]
  - Epistaxis [None]
  - Rash [None]
  - Eye pain [None]
  - Arthralgia [None]
  - Ventricular extrasystoles [None]
  - Visual impairment [None]
  - Dysgeusia [None]
  - Tremor [None]
  - Platelet count decreased [None]
  - Anaemia [None]
  - Haemoglobin decreased [None]
  - Chest discomfort [None]
